FAERS Safety Report 7996804-9 (Version None)
Quarter: 2011Q4

REPORT INFORMATION
  Report Type: 
  Country: None (occurrence: None)
  Receive Date: 20111221
  Receipt Date: 20111213
  Transmission Date: 20120403
  Serious: Yes (Death, Other)
  Sender: FDA-Public Use
  Company Number: FR-UCBSA-047684

PATIENT
  Age: 49 Year
  Sex: Male

DRUGS (13)
  1. FLAGYL [Concomitant]
     Dates: start: 20110415, end: 20110423
  2. SUFENTA PRESERVATIVE FREE [Concomitant]
     Dates: start: 20110404
  3. OFLOXACIN [Concomitant]
     Dates: start: 20110415, end: 20110423
  4. VANCOMYCIN HCL [Suspect]
     Dates: start: 20110410, end: 20110415
  5. NEXIUM [Suspect]
     Dates: start: 20110404, end: 20110412
  6. ACTRAPID [Concomitant]
     Dates: start: 20110412
  7. MIDAZOLAM HCL [Concomitant]
     Dates: start: 20110404
  8. PENTOTHAL [Concomitant]
     Dates: start: 20110406
  9. PIPERACILLIN AND TAZOBACTAM [Concomitant]
     Dates: start: 20110410, end: 20110411
  10. NOREPINEPHRINE BITARTRATE [Concomitant]
     Dates: start: 20110404
  11. KEPPRA [Suspect]
     Dates: start: 20110404, end: 20110412
  12. AMOXICILLIN TRIHYDRATE [Suspect]
     Dates: start: 20110412, end: 20110415
  13. AMIKACIN [Concomitant]
     Dates: start: 20110410, end: 20110411

REACTIONS (8)
  - PANCREATITIS ACUTE [None]
  - CHOLECYSTITIS [None]
  - RENAL FAILURE [None]
  - CYTOLYTIC HEPATITIS [None]
  - LUNG DISORDER [None]
  - MULTI-ORGAN FAILURE [None]
  - RASH MACULAR [None]
  - SEPTIC SHOCK [None]
